FAERS Safety Report 23325360 (Version 1)
Quarter: 2023Q4

REPORT INFORMATION
  Report Type: Spontaneous
  Country: TR (occurrence: TR)
  Receive Date: 20231221
  Receipt Date: 20231221
  Transmission Date: 20240110
  Serious: Yes (Other)
  Sender: FDA-Public Use
  Company Number: TR-MACLEODS PHARMACEUTICALS US LTD-MAC2023044875

PATIENT

DRUGS (5)
  1. METFORMIN [Suspect]
     Active Substance: METFORMIN HYDROCHLORIDE
     Indication: Type 2 diabetes mellitus
     Dosage: 1 GRAM, QD
     Route: 065
  2. DESLORATADINE [Concomitant]
     Active Substance: DESLORATADINE
     Indication: Palpable purpura
     Dosage: 5 MILLIGRAM
     Route: 048
  3. DESLORATADINE [Concomitant]
     Active Substance: DESLORATADINE
     Indication: Petechiae
  4. METHYLPREDNISOLONE [Concomitant]
     Active Substance: METHYLPREDNISOLONE
     Indication: Palpable purpura
     Dosage: 1 DOSAGE FORM
     Route: 061
  5. METHYLPREDNISOLONE [Concomitant]
     Active Substance: METHYLPREDNISOLONE
     Indication: Petechiae

REACTIONS (4)
  - Cutaneous vasculitis [Recovered/Resolved]
  - Tubulointerstitial nephritis [Recovered/Resolved]
  - Glomerulonephritis proliferative [Recovered/Resolved]
  - Glomerulonephritis [Recovered/Resolved]
